FAERS Safety Report 10488695 (Version 1)
Quarter: 2014Q4

REPORT INFORMATION
  Report Type: Spontaneous
  Country: US (occurrence: None)
  Receive Date: 20141001
  Receipt Date: 20141001
  Transmission Date: 20150528
  Serious: Yes (Other)
  Sender: FDA-Public Use
  Company Number: None

PATIENT
  Age: 51 Year
  Sex: Female
  Weight: 59.1 kg

DRUGS (1)
  1. DULOXETINE HCL [Suspect]
     Active Substance: DULOXETINE HYDROCHLORIDE
     Indication: DEPRESSION
     Dates: start: 20140328, end: 20140418

REACTIONS (5)
  - Irritability [None]
  - Lip swelling [None]
  - Vision blurred [None]
  - Product substitution issue [None]
  - Hallucination [None]
